FAERS Safety Report 25454923 (Version 1)
Quarter: 2025Q2

REPORT INFORMATION
  Report Type: Spontaneous
  Country: ES (occurrence: ES)
  Receive Date: 20250619
  Receipt Date: 20250619
  Transmission Date: 20250717
  Serious: Yes (Other)
  Sender: RANBAXY
  Company Number: ES-SUN PHARMACEUTICAL INDUSTRIES LTD-2025RR-512716

PATIENT
  Age: 57 Year
  Sex: Female

DRUGS (9)
  1. GEMCITABINE [Suspect]
     Active Substance: GEMCITABINE
     Indication: Uterine leiomyosarcoma
     Route: 065
  2. LETROZOLE [Suspect]
     Active Substance: LETROZOLE
     Indication: Uterine leiomyosarcoma
     Route: 065
  3. TEMOZOLOMIDE [Suspect]
     Active Substance: TEMOZOLOMIDE
     Indication: Uterine leiomyosarcoma
     Route: 065
  4. TRABECTEDIN [Suspect]
     Active Substance: TRABECTEDIN
     Indication: Uterine leiomyosarcoma
     Route: 065
  5. DOXORUBICIN HYDROCHLORIDE [Suspect]
     Active Substance: DOXORUBICIN HYDROCHLORIDE
     Indication: Uterine leiomyosarcoma
     Route: 065
  6. PACLITAXEL [Suspect]
     Active Substance: PACLITAXEL
     Indication: Uterine leiomyosarcoma
     Route: 065
  7. PAZOPANIB [Suspect]
     Active Substance: PAZOPANIB
     Indication: Uterine leiomyosarcoma
     Route: 065
  8. DACARBAZINE [Concomitant]
     Active Substance: DACARBAZINE
     Indication: Uterine leiomyosarcoma
     Route: 065
  9. ERIBULIN [Concomitant]
     Active Substance: ERIBULIN
     Indication: Uterine leiomyosarcoma
     Route: 065

REACTIONS (2)
  - Neoplasm progression [Unknown]
  - Adverse event [Unknown]
